FAERS Safety Report 16343280 (Version 1)
Quarter: 2019Q2

REPORT INFORMATION
  Report Type: Report from Study
  Country: US (occurrence: US)
  Receive Date: 20190522
  Receipt Date: 20190522
  Transmission Date: 20190711
  Serious: Yes (Hospitalization)
  Sender: FDA-Public Use
  Company Number: US-ACTELION-A-NJ2019-186670

PATIENT
  Sex: Female
  Weight: 88.89 kg

DRUGS (2)
  1. UPTRAVI [Suspect]
     Active Substance: SELEXIPAG
     Dosage: 200 MCG, BID
     Route: 048
  2. UPTRAVI [Suspect]
     Active Substance: SELEXIPAG
     Indication: PULMONARY ARTERIAL HYPERTENSION
     Dosage: 400 MCG, BID
     Route: 048

REACTIONS (9)
  - Pain in jaw [Unknown]
  - Myalgia [Unknown]
  - Neuralgia [Unknown]
  - Pneumonia [Unknown]
  - Dyspnoea [Unknown]
  - Generalised oedema [Unknown]
  - Pain in extremity [Unknown]
  - Concomitant disease aggravated [Unknown]
  - Headache [Unknown]
